FAERS Safety Report 11848148 (Version 2)
Quarter: 2016Q1

REPORT INFORMATION
  Report Type: Spontaneous
  Country: US (occurrence: US)
  Receive Date: 20151217
  Receipt Date: 20160227
  Transmission Date: 20160526
  Serious: No
  Sender: FDA-Public Use
  Company Number: US-CELGENEUS-USA-2015115730

PATIENT

DRUGS (3)
  1. THALOMID [Suspect]
     Active Substance: THALIDOMIDE
     Dosage: 50MG-100MG
     Route: 048
     Dates: start: 201404
  2. THALOMID [Suspect]
     Active Substance: THALIDOMIDE
     Route: 048
     Dates: start: 201508
  3. THALOMID [Suspect]
     Active Substance: THALIDOMIDE
     Indication: LEPROSY
     Route: 048
     Dates: start: 201211

REACTIONS (2)
  - Drug intolerance [Unknown]
  - Leprosy [Unknown]
